FAERS Safety Report 7602058-5 (Version None)
Quarter: 2011Q3

REPORT INFORMATION
  Report Type: 
  Country: None (occurrence: None)
  Receive Date: 20110711
  Receipt Date: 20110707
  Transmission Date: 20111222
  Serious: Yes (Other)
  Sender: FDA-Public Use
  Company Number: CHPA2011DE06669

PATIENT
  Sex: Male
  Weight: 85 kg

DRUGS (2)
  1. NASACORT [Concomitant]
     Dosage: 1 DF, QD
     Route: 065
     Dates: start: 20110501, end: 20110601
  2. OTRIVIN [Suspect]
     Indication: NASAL CONGESTION
     Dosage: ^6X1 SPRAY PUFF^
     Route: 045
     Dates: start: 19930101

REACTIONS (3)
  - DRUG DEPENDENCE [None]
  - INCORRECT DRUG ADMINISTRATION DURATION [None]
  - PRODUCT SIZE ISSUE [None]
